FAERS Safety Report 23666692 (Version 3)
Quarter: 2024Q1

REPORT INFORMATION
  Report Type: Other
  Country: US (occurrence: None)
  Receive Date: 20240325
  Receipt Date: 20240328
  Transmission Date: 20240410
  Serious: Yes (Death)
  Sender: FDA-Public Use
  Company Number: US-ROCHE-3527542

PATIENT
  Age: 61 Year
  Sex: Male

DRUGS (7)
  1. OCREVUS [Suspect]
     Active Substance: OCRELIZUMAB
     Indication: Relapsing multiple sclerosis
     Dosage: FORM STRENGTH: 300 MG/ 10 ML
     Route: 042
     Dates: start: 20200909
  2. ACTONEL [Concomitant]
     Active Substance: RISEDRONATE SODIUM
  3. AMPYRA [Concomitant]
     Active Substance: DALFAMPRIDINE
  4. BACLOFEN [Concomitant]
     Active Substance: BACLOFEN
  5. DANTROLENE [Concomitant]
     Active Substance: DANTROLENE
  6. TERAZOSIN HYDROCHLORIDE [Concomitant]
     Active Substance: TERAZOSIN HYDROCHLORIDE
  7. VITAMIN D3 [Concomitant]
     Active Substance: CHOLECALCIFEROL

REACTIONS (1)
  - Death [Fatal]
